FAERS Safety Report 5863039-5 (Version None)
Quarter: 2008Q3

REPORT INFORMATION
  Report Type: 
  Country: None (occurrence: None)
  Receive Date: 20080818
  Receipt Date: 20080502
  Transmission Date: 20090109
  Serious: No
  Sender: FDA-Public Use
  Company Number: WAES 0805USA00616

PATIENT
  Age: 63 Year
  Sex: Female

DRUGS (4)
  1. JANUVIA [Suspect]
     Indication: DIABETES MELLITUS
     Dosage: 100 MG/DAILY/PO
     Route: 048
     Dates: start: 20080425, end: 20080501
  2. ALLEGRA [Concomitant]
  3. PULMICORT-100 [Concomitant]
  4. SEREVENT [Concomitant]

REACTIONS (1)
  - HEADACHE [None]
